FAERS Safety Report 5717225-5 (Version None)
Quarter: 2008Q2

REPORT INFORMATION
  Report Type: 
  Country: None (occurrence: None)
  Receive Date: 20080423
  Receipt Date: 20080411
  Transmission Date: 20081010
  Serious: Yes (Other)
  Sender: FDA-Public Use
  Company Number: TPA2008A00133

PATIENT

DRUGS (1)
  1. ACTOS [Suspect]
     Indication: DRUG USE FOR UNKNOWN INDICATION
     Dosage: PER ORAL
     Route: 048
     Dates: start: 20060101

REACTIONS (3)
  - MACULAR DEGENERATION [None]
  - MACULAR OEDEMA [None]
  - RETINAL OEDEMA [None]
